FAERS Safety Report 10314533 (Version 2)
Quarter: 2014Q4

REPORT INFORMATION
  Report Type: Spontaneous
  Country: US (occurrence: None)
  Receive Date: 20140714
  Receipt Date: 20141106
  Transmission Date: 20150528
  Serious: Yes (Life-Threatening, Hospitalization)
  Sender: FDA-Public Use
  Company Number: 1713747-2014-99965

PATIENT
  Age: 64 Year
  Sex: Female

DRUGS (3)
  1. LIBERTY CYCLER [Concomitant]
     Active Substance: DEVICE
  2. DELFLEX [Suspect]
     Active Substance: CALCIUM CHLORIDE\DEXTROSE MONOHYDRATE\MAGNESIUM CHLORIDE\SODIUM CHLORIDE\SODIUM LACTATE
     Indication: PRODUCT USED FOR UNKNOWN INDICATION
     Dosage: PERITONEAL DIALYSIS
  3. LIBERTY CYCLER SET [Concomitant]

REACTIONS (7)
  - Hypotension [None]
  - Sepsis [None]
  - Respiratory arrest [None]
  - Urinary tract infection [None]
  - Culture urine positive [None]
  - Unresponsive to stimuli [None]
  - Mental status changes [None]

NARRATIVE: CASE EVENT DATE: 20140426
